FAERS Safety Report 19960604 (Version 3)
Quarter: 2021Q4

REPORT INFORMATION
  Report Type: Spontaneous
  Country: JP (occurrence: JP)
  Receive Date: 20211015
  Receipt Date: 20211126
  Transmission Date: 20220303
  Serious: Yes (Life-Threatening)
  Sender: FDA-Public Use
  Company Number: JP-CHUGAI-2021021896

PATIENT
  Age: 54 Year
  Sex: Female
  Weight: 39 kg

DRUGS (7)
  1. ACTEMRA [Suspect]
     Active Substance: TOCILIZUMAB
     Indication: Rheumatoid arthritis
     Dosage: UNK, ONCE/2WEEKS
     Route: 042
     Dates: start: 20161012
  2. ACTEMRA [Suspect]
     Active Substance: TOCILIZUMAB
     Indication: Rheumatoid arthritis
     Route: 058
     Dates: start: 20201002
  3. ELDECALCITOL [Concomitant]
     Active Substance: ELDECALCITOL
  4. PREDNISOLONE [Concomitant]
     Active Substance: PREDNISOLONE
  5. CELECOXIB [Concomitant]
     Active Substance: CELECOXIB
  6. MINODRONIC ACID [Concomitant]
     Active Substance: MINODRONIC ACID
  7. IGURATIMOD [Concomitant]
     Active Substance: IGURATIMOD

REACTIONS (2)
  - Lung neoplasm malignant [Unknown]
  - Metastases to lymph nodes [Unknown]

NARRATIVE: CASE EVENT DATE: 20210831
